FAERS Safety Report 25942323 (Version 1)
Quarter: 2025Q4

REPORT INFORMATION
  Report Type: Spontaneous
  Country: AU (occurrence: AU)
  Receive Date: 20251021
  Receipt Date: 20251021
  Transmission Date: 20260117
  Serious: Yes (Hospitalization, Other)
  Sender: CIPLA
  Company Number: AU-CIPLA LTD.-2025AU11187

PATIENT

DRUGS (24)
  1. ESCITALOPRAM [Suspect]
     Active Substance: ESCITALOPRAM OXALATE
     Indication: Sedation
     Dosage: 20 MILLIGRAM, QD (20 MG DAILY)
     Route: 048
  2. ESCITALOPRAM [Suspect]
     Active Substance: ESCITALOPRAM OXALATE
     Indication: Alcoholism
     Dosage: 160 MILLIGRAM (OVERDOSE)
     Route: 048
  3. ESCITALOPRAM [Suspect]
     Active Substance: ESCITALOPRAM OXALATE
     Dosage: UNK
     Route: 048
  4. DEXMEDETOMIDINE [Suspect]
     Active Substance: DEXMEDETOMIDINE
     Indication: Agitation
     Dosage: UNK
     Route: 065
  5. DEXMEDETOMIDINE [Suspect]
     Active Substance: DEXMEDETOMIDINE
     Indication: Delirium
     Dosage: UNK (LOWER DOSE), 1.5 MCG/KG/H, INTERVAL: 1 HOUR
     Route: 065
  6. DEXMEDETOMIDINE [Suspect]
     Active Substance: DEXMEDETOMIDINE
     Indication: Sedation
  7. BACLOFEN [Suspect]
     Active Substance: BACLOFEN
     Indication: Alcoholism
     Dosage: 10 MILLIGRAM, TID (REGULAR DOSE)
     Route: 048
  8. BACLOFEN [Suspect]
     Active Substance: BACLOFEN
     Dosage: 600 MILLIGRAM (OVERDOSE)
     Route: 048
  9. BACLOFEN [Suspect]
     Active Substance: BACLOFEN
     Dosage: 5 MILLIGRAM, TID (REINTRODUCTION)
     Route: 048
  10. BACLOFEN [Suspect]
     Active Substance: BACLOFEN
     Dosage: UNK (2 REGIMENS)
     Route: 048
  11. ALCOHOL (ALCOHOL) [Suspect]
     Active Substance: ALCOHOL
     Dosage: UNK
     Route: 065
  12. HALOPERIDOL [Suspect]
     Active Substance: HALOPERIDOL
     Indication: Agitation
     Dosage: UNK
  13. HALOPERIDOL [Suspect]
     Active Substance: HALOPERIDOL
     Indication: Delirium
     Dosage: UNK (2 REGIMENS)
     Route: 065
  14. MIDAZOLAM [Suspect]
     Active Substance: MIDAZOLAM
     Indication: Agitation
     Dosage: UNK (2 REGIMENS)
     Route: 065
  15. MIDAZOLAM [Suspect]
     Active Substance: MIDAZOLAM
     Indication: Delirium
  16. PROPOFOL [Concomitant]
     Active Substance: PROPOFOL
     Indication: Sedation
     Dosage: UNK (INFUSION)
     Route: 065
  17. PROPOFOL [Concomitant]
     Active Substance: PROPOFOL
     Dosage: UNK (UNKNOWN FORMULATION)
     Route: 065
  18. FENTANYL [Concomitant]
     Active Substance: FENTANYL
     Indication: Sedation
     Dosage: UNK
     Route: 065
  19. EPINEPHRINE [Concomitant]
     Active Substance: EPINEPHRINE
     Indication: Cardiac output decreased
     Dosage: 2 MICROGRAM, EVERY 1MINS
     Route: 065
  20. ATROPINE [Concomitant]
     Active Substance: ATROPINE
     Indication: Bradyarrhythmia
     Dosage: 600 MILLIGRAM
     Route: 065
  21. HALOPERIDOL [Concomitant]
     Active Substance: HALOPERIDOL
     Indication: Delirium
     Dosage: UNK
     Route: 065
  22. HALOPERIDOL [Concomitant]
     Active Substance: HALOPERIDOL
     Indication: Agitation
  23. MIDAZOLAM [Concomitant]
     Active Substance: MIDAZOLAM
     Indication: Delirium
     Dosage: UNK
     Route: 065
  24. MIDAZOLAM [Concomitant]
     Active Substance: MIDAZOLAM
     Indication: Agitation

REACTIONS (13)
  - Intentional overdose [Unknown]
  - Bradyarrhythmia [Recovered/Resolved]
  - Cardiac output decreased [Recovered/Resolved]
  - Hypotension [Recovered/Resolved]
  - Bradycardia [Recovered/Resolved]
  - Delirium [Recovered/Resolved]
  - Drug ineffective [Unknown]
  - Agitation [Unknown]
  - Drug withdrawal syndrome [Unknown]
  - Mental status changes [Recovered/Resolved]
  - Off label use [Unknown]
  - Toxicity to various agents [Unknown]
  - Therapy non-responder [Unknown]
